FAERS Safety Report 22258922 (Version 4)
Quarter: 2023Q2

REPORT INFORMATION
  Report Type: Spontaneous
  Country: SE (occurrence: SE)
  Receive Date: 20230427
  Receipt Date: 20230613
  Transmission Date: 20230722
  Serious: No
  Sender: FDA-Public Use
  Company Number: SE-PFIZER INC-202300163205

PATIENT
  Sex: Female

DRUGS (1)
  1. ESTRADIOL [Suspect]
     Active Substance: ESTRADIOL
     Indication: Urinary tract infection
     Dosage: UNK

REACTIONS (3)
  - Device difficult to use [Unknown]
  - Off label use [Unknown]
  - Drug effective for unapproved indication [Unknown]
